FAERS Safety Report 7216139-1 (Version None)
Quarter: 2011Q1

REPORT INFORMATION
  Report Type: 
  Country: None (occurrence: None)
  Receive Date: 20110107
  Receipt Date: 20110103
  Transmission Date: 20110831
  Serious: Yes (Hospitalization, Other)
  Sender: FDA-Public Use
  Company Number: FR-PFIZER INC-2010163494

PATIENT
  Age: 63 Year
  Sex: Male
  Weight: 72 kg

DRUGS (10)
  1. ALPRAZOLAM [Concomitant]
     Dosage: UNK
  2. LERCAN [Concomitant]
     Dosage: UNK
  3. INSULATARD NPH [Concomitant]
     Dosage: 15 IU, 2X/DAY
  4. OMEPRAZOLE [Concomitant]
     Dosage: 20 MG, 1X/DAY
  5. ALDACTAZINE [Concomitant]
     Dosage: UNK
  6. GENTAMICIN [Concomitant]
  7. SUTENT [Suspect]
     Indication: RENAL CELL CARCINOMA
     Dosage: 37.5 MG, 1X/DAY
     Dates: start: 20060401, end: 20101121
  8. LEVOTHYROX [Concomitant]
     Dosage: 137.5 UG, 1X/DAY
  9. RILMENIDINE [Concomitant]
     Dosage: 1 MG, 2X/DAY
  10. ROCEPHIN [Concomitant]

REACTIONS (1)
  - CHOLECYSTITIS [None]
